FAERS Safety Report 13935431 (Version 1)
Quarter: 2017Q3

REPORT INFORMATION
  Report Type: Spontaneous
  Country: US (occurrence: US)
  Receive Date: 20170901
  Receipt Date: 20170901
  Transmission Date: 20171127
  Serious: No
  Sender: FDA-Public Use
  Company Number: None

PATIENT
  Age: 63 Year
  Sex: Male
  Weight: 101.7 kg

DRUGS (3)
  1. OXYCODONE-ACETAMINOPHEN [Suspect]
     Active Substance: ACETAMINOPHEN\OXYCODONE HYDROCHLORIDE
     Indication: PROCEDURAL PAIN
     Dosage: ?          QUANTITY:12 TABLET(S);?
     Route: 048
     Dates: start: 20170901
  2. COUMADIN [Concomitant]
     Active Substance: WARFARIN SODIUM
  3. GLUCOSAMINE CHRONDROITIN [Concomitant]

REACTIONS (4)
  - Nausea [None]
  - Dizziness [None]
  - Product substitution issue [None]
  - Headache [None]

NARRATIVE: CASE EVENT DATE: 20170901
